FAERS Safety Report 15308322 (Version 1)
Quarter: 2018Q3

REPORT INFORMATION
  Report Type: Spontaneous
  Country: TR (occurrence: TR)
  Receive Date: 20180822
  Receipt Date: 20180822
  Transmission Date: 20181010
  Serious: Yes (Hospitalization)
  Sender: FDA-Public Use
  Company Number: TR-ANIPHARMA-2018-TR-000050

PATIENT
  Age: 25 Year
  Sex: Male

DRUGS (2)
  1. ALCOHOL. [Suspect]
     Active Substance: ALCOHOL
     Route: 048
  2. PROPAFENONE HYDROCHLORIDE (NON?SPECIFC) [Suspect]
     Active Substance: PROPAFENONE HYDROCHLORIDE
     Indication: ATRIAL FIBRILLATION
     Dosage: 450 MG DAILY

REACTIONS (6)
  - Generalised tonic-clonic seizure [Unknown]
  - Drug interaction [Unknown]
  - Conduction disorder [Unknown]
  - Cardiac arrest [Unknown]
  - Metabolic acidosis [Recovered/Resolved]
  - Loss of consciousness [Unknown]
